FAERS Safety Report 11830871 (Version 1)
Quarter: 2015Q4

REPORT INFORMATION
  Report Type: Spontaneous
  Country: GB (occurrence: GB)
  Receive Date: 20151214
  Receipt Date: 20151214
  Transmission Date: 20160305
  Serious: Yes (Hospitalization)
  Sender: FDA-Public Use
  Company Number: GB-ACCORD-036104

PATIENT
  Age: 77 Year
  Sex: Female

DRUGS (15)
  1. ATORVASTATIN [Concomitant]
     Active Substance: ATORVASTATIN
  2. IRON [Concomitant]
     Active Substance: IRON
  3. ISOSORBIDE. [Concomitant]
     Active Substance: ISOSORBIDE
     Dosage: HOLDING.
  4. RAMIPRIL. [Suspect]
     Active Substance: RAMIPRIL
     Indication: ACUTE MYOCARDIAL INFARCTION
     Route: 048
     Dates: start: 20150601, end: 20151122
  5. AMITRIPTYLINE [Concomitant]
     Active Substance: AMITRIPTYLINE
  6. CORACTEN XL [Concomitant]
     Active Substance: NIFEDIPINE
     Dosage: HOLDING.
  7. ASPIRIN. [Concomitant]
     Active Substance: ASPIRIN
  8. LANSOPRAZOLE. [Concomitant]
     Active Substance: LANSOPRAZOLE
  9. SALBUTAMOL [Concomitant]
     Active Substance: ALBUTEROL
  10. BISOPROLOL [Concomitant]
     Active Substance: BISOPROLOL
     Dosage: HOLDING.
  11. FULTIUM-D3 [Concomitant]
  12. PARACETAMOL [Concomitant]
     Active Substance: ACETAMINOPHEN
  13. TRAMADOL. [Concomitant]
     Active Substance: TRAMADOL
  14. GLYCERYL TRINITRATE [Concomitant]
     Active Substance: NITROGLYCERIN
  15. PREGABALIN. [Concomitant]
     Active Substance: PREGABALIN

REACTIONS (6)
  - Speech disorder [Unknown]
  - Eye movement disorder [Unknown]
  - Hyperkalaemia [Recovering/Resolving]
  - Chest pain [Unknown]
  - Bradycardia [Unknown]
  - Tremor [Unknown]

NARRATIVE: CASE EVENT DATE: 20151121
